FAERS Safety Report 14375975 (Version 1)
Quarter: 2018Q1

REPORT INFORMATION
  Report Type: Spontaneous
  Country: US (occurrence: US)
  Receive Date: 20180111
  Receipt Date: 20180111
  Transmission Date: 20180509
  Serious: Yes (Other)
  Sender: FDA-Public Use
  Company Number: US-DSJP-DSU-2017-144843

PATIENT

DRUGS (2)
  1. BENICAR [Suspect]
     Active Substance: OLMESARTAN MEDOXOMIL
     Dosage: 40 MG HALF TABLET, QD
     Route: 048
     Dates: start: 20070114
  2. BENICAR [Suspect]
     Active Substance: OLMESARTAN MEDOXOMIL
     Indication: HYPERTENSION
     Dosage: 20 MG, QD
     Route: 048
     Dates: start: 20070114

REACTIONS (6)
  - Sprue-like enteropathy [Recovered/Resolved]
  - Rectal haemorrhage [Recovered/Resolved]
  - Gastrooesophageal reflux disease [Unknown]
  - Drug administration error [Unknown]
  - Irritable bowel syndrome [Not Recovered/Not Resolved]
  - Pancreatitis [Unknown]

NARRATIVE: CASE EVENT DATE: 20110701
